FAERS Safety Report 11447774 (Version 1)
Quarter: 2015Q3

REPORT INFORMATION
  Report Type: Spontaneous
  Country: US (occurrence: US)
  Receive Date: 20150831
  Receipt Date: 20150831
  Transmission Date: 20151125
  Serious: No
  Sender: FDA-Public Use
  Company Number: US-ELI_LILLY_AND_COMPANY-US200904002136

PATIENT
  Age: 67 Year
  Sex: Female

DRUGS (5)
  1. CYMBALTA [Suspect]
     Active Substance: DULOXETINE HYDROCHLORIDE
     Dosage: 30 MG, DAILY (1/D)
  2. CYMBALTA [Suspect]
     Active Substance: DULOXETINE HYDROCHLORIDE
     Indication: IRRITABLE BOWEL SYNDROME
     Dosage: 60 MG, DAILY (1/D)
     Dates: end: 200904
  3. CYMBALTA [Suspect]
     Active Substance: DULOXETINE HYDROCHLORIDE
     Dosage: 30 MG, 2/D
  4. CYMBALTA [Suspect]
     Active Substance: DULOXETINE HYDROCHLORIDE
     Dosage: 60 MG, 2/D
  5. DESIPRAMINE [Concomitant]
     Active Substance: DESIPRAMINE
     Indication: IRRITABLE BOWEL SYNDROME

REACTIONS (4)
  - Abdominal pain upper [Unknown]
  - Medication error [Unknown]
  - Intraocular pressure increased [Unknown]
  - Nervousness [Unknown]

NARRATIVE: CASE EVENT DATE: 20090320
